FAERS Safety Report 12695190 (Version 1)
Quarter: 2016Q3

REPORT INFORMATION
  Report Type: Spontaneous
  Country: DE (occurrence: DE)
  Receive Date: 20160829
  Receipt Date: 20160829
  Transmission Date: 20161109
  Serious: Yes (Other)
  Sender: FDA-Public Use
  Company Number: DE-TEVA-686471GER

PATIENT
  Age: 1 Day
  Sex: Male
  Weight: 3.07 kg

DRUGS (3)
  1. FEMIBION (NEM) [Concomitant]
     Indication: PROPHYLAXIS OF NEURAL TUBE DEFECT
     Route: 064
     Dates: start: 20151015, end: 20160627
  2. SERTRALINE [Suspect]
     Active Substance: SERTRALINE HYDROCHLORIDE
     Indication: DEPRESSION
     Dosage: 100 MG/D (50 MG) / SINCE 13-MAY-2016: 100 MG SERTRALINE
     Route: 064
     Dates: start: 20151003, end: 20160627
  3. DIAZEPAM. [Suspect]
     Active Substance: DIAZEPAM
     Indication: DEPRESSION
     Dosage: 8 MG/D -6 MG/D / FROM 28-APR-2016 UNTIL 26-MAY-2016: 8 MG/D; WEEK 37+2 UNTIL DELIVERY3X2 MG/D
     Route: 064
     Dates: start: 20151003, end: 20160627

REACTIONS (4)
  - Respiratory disorder neonatal [Recovered/Resolved]
  - Drug withdrawal syndrome neonatal [Recovered/Resolved]
  - Atrial septal defect [Unknown]
  - Foetal exposure during pregnancy [Unknown]

NARRATIVE: CASE EVENT DATE: 20160627
